FAERS Safety Report 7626861 (Version 5)
Quarter: 2012Q4

REPORT INFORMATION
  Report Type: 
  Country: US (occurrence: US)
  Receive Date: 20101013
  Receipt Date: 20121121
  Transmission Date: 20130627
  Serious: Yes (Other)
  Sender: FDA-Public Use
  Company Number: US-ASTRAZENECA-2010SE10731

PATIENT
  Age: 983 Month
  Sex: Female
  Weight: 57.2 kg

DRUGS (10)
  1. SYMBICORT PMDI [Suspect]
     Indication: ASTHMA
     Dosage: 320/9 mcg, TWO TIMES A DAY
     Route: 055
     Dates: start: 20100217
  2. SYMBICORT PMDI [Suspect]
     Indication: CHRONIC OBSTRUCTIVE PULMONARY DISEASE
     Dosage: 320/9 mcg, TWO TIMES A DAY
     Route: 055
     Dates: start: 20100217
  3. SYMBICORT PMDI [Suspect]
     Indication: ASTHMA
     Dosage: 160/4.5 MCG, TWO PUFFS, TWO TIMES A DAY
     Route: 055
  4. SYMBICORT PMDI [Suspect]
     Indication: CHRONIC OBSTRUCTIVE PULMONARY DISEASE
     Dosage: 160/4.5 MCG, TWO PUFFS, TWO TIMES A DAY
     Route: 055
  5. OMEPRAZOLE [Concomitant]
     Indication: GASTROOESOPHAGEAL REFLUX DISEASE
     Route: 048
  6. VITAMINS [Concomitant]
  7. TYLENOL [Concomitant]
     Indication: HEADACHE
  8. ALBUTEROL [Concomitant]
     Dosage: PRN
     Route: 055
  9. STEROIDS [Concomitant]
  10. STEROIDS [Concomitant]

REACTIONS (18)
  - Glaucoma [Not Recovered/Not Resolved]
  - Macular degeneration [Not Recovered/Not Resolved]
  - Chronic obstructive pulmonary disease [Unknown]
  - Productive cough [Unknown]
  - Osteoporosis [Unknown]
  - Decreased activity [Unknown]
  - Gait disturbance [Unknown]
  - Hepatic enzyme increased [Unknown]
  - Asthenopia [Unknown]
  - Pyrexia [Recovered/Resolved]
  - Sinus headache [Unknown]
  - Upper-airway cough syndrome [Unknown]
  - Drug effect decreased [Unknown]
  - Osteopenia [Unknown]
  - Rhinorrhoea [Unknown]
  - Throat irritation [Unknown]
  - Dysphonia [Unknown]
  - Drug dose omission [Unknown]
